FAERS Safety Report 8453057-5 (Version None)
Quarter: 2012Q2

REPORT INFORMATION
  Report Type: 
  Country: None (occurrence: None)
  Receive Date: 20120620
  Receipt Date: 20120618
  Transmission Date: 20120825
  Serious: Yes (Other)
  Sender: FDA-Public Use
  Company Number: PHHY2012US052018

PATIENT
  Age: 29 Year
  Sex: Female

DRUGS (2)
  1. PHENYTOIN [Suspect]
     Indication: CONVULSION
  2. VALPROIC ACID [Suspect]
     Indication: CONVULSION

REACTIONS (1)
  - GINGIVAL HYPERPLASIA [None]
